FAERS Safety Report 24402182 (Version 2)
Quarter: 2024Q4

REPORT INFORMATION
  Report Type: Spontaneous
  Country: US (occurrence: US)
  Receive Date: 20241007
  Receipt Date: 20241125
  Transmission Date: 20250115
  Serious: Yes (Other)
  Sender: CATALYST PHARMA
  Company Number: US-CATALYSTPHARMACEUTICALPARTNERS-US-CATA-24-01090

PATIENT
  Sex: Male

DRUGS (3)
  1. FYCOMPA [Suspect]
     Active Substance: PERAMPANEL
     Indication: Seizure
     Dosage: 2 MG ONCE DAILY
     Route: 048
     Dates: start: 20240827
  2. FYCOMPA [Suspect]
     Active Substance: PERAMPANEL
     Indication: Movement disorder
  3. FYCOMPA [Suspect]
     Active Substance: PERAMPANEL
     Indication: Partial seizures

REACTIONS (9)
  - Seizure [Unknown]
  - Seizure [Unknown]
  - Seizure [Unknown]
  - Communication disorder [Unknown]
  - Stress [Not Recovered/Not Resolved]
  - Cerebral disorder [Unknown]
  - Limb injury [Unknown]
  - Contusion [Unknown]
  - Memory impairment [Not Recovered/Not Resolved]

NARRATIVE: CASE EVENT DATE: 20240101
